FAERS Safety Report 13127483 (Version 9)
Quarter: 2017Q4

REPORT INFORMATION
  Report Type: Spontaneous
  Country: US (occurrence: US)
  Receive Date: 20170118
  Receipt Date: 20171222
  Transmission Date: 20180320
  Serious: Yes (Hospitalization)
  Sender: FDA-Public Use
  Company Number: US-ACTELION-A-US2017-148388

PATIENT
  Age: 54 Year
  Sex: Female

DRUGS (21)
  1. DILAUDID [Concomitant]
     Active Substance: HYDROMORPHONE HYDROCHLORIDE
  2. XYZAL [Concomitant]
     Active Substance: LEVOCETIRIZINE DIHYDROCHLORIDE
  3. PERCOCET [Concomitant]
     Active Substance: ACETAMINOPHEN\OXYCODONE HYDROCHLORIDE
  4. SYNTHROID [Concomitant]
     Active Substance: LEVOTHYROXINE SODIUM
  5. CYCLOBENZAPRINE. [Concomitant]
     Active Substance: CYCLOBENZAPRINE
  6. CLONIDINE. [Concomitant]
     Active Substance: CLONIDINE
  7. SILDENAFIL. [Concomitant]
     Active Substance: SILDENAFIL
  8. REMODULIN [Concomitant]
     Active Substance: TREPROSTINIL
     Route: 042
  9. TEKTURNA [Concomitant]
     Active Substance: ALISKIREN HEMIFUMARATE
  10. DIGOXIN. [Concomitant]
     Active Substance: DIGOXIN
  11. METOLAZONE. [Concomitant]
     Active Substance: METOLAZONE
  12. PROAIR HFA [Concomitant]
     Active Substance: ALBUTEROL SULFATE
  13. TORSEMIDE. [Concomitant]
     Active Substance: TORSEMIDE
  14. TOPAMAX [Concomitant]
     Active Substance: TOPIRAMATE
  15. PRAVASTATIN. [Concomitant]
     Active Substance: PRAVASTATIN
  16. CLINDAMYCIN. [Concomitant]
     Active Substance: CLINDAMYCIN
  17. OXYGEN. [Concomitant]
     Active Substance: OXYGEN
  18. OPSUMIT [Suspect]
     Active Substance: MACITENTAN
     Indication: PULMONARY ARTERIAL HYPERTENSION
     Dosage: 10 MG, QD
     Route: 048
     Dates: start: 20160503
  19. AZATHIOPRINE. [Concomitant]
     Active Substance: AZATHIOPRINE
  20. AMLODIPINE [Concomitant]
     Active Substance: AMLODIPINE BESYLATE
  21. TRAMADOL. [Concomitant]
     Active Substance: TRAMADOL

REACTIONS (13)
  - Herpes zoster [Unknown]
  - Oxygen saturation decreased [Unknown]
  - Diarrhoea [Unknown]
  - Fatigue [Recovered/Resolved]
  - Dizziness [Recovered/Resolved]
  - Neck pain [Not Recovered/Not Resolved]
  - Tooth extraction [Recovering/Resolving]
  - Pain [Unknown]
  - Chronic obstructive pulmonary disease [Not Recovered/Not Resolved]
  - Dyspnoea [Unknown]
  - Peripheral swelling [Unknown]
  - Nausea [Unknown]
  - Vomiting [Unknown]

NARRATIVE: CASE EVENT DATE: 20170111
